FAERS Safety Report 6121848-1 (Version None)
Quarter: 2009Q1

REPORT INFORMATION
  Report Type: 
  Country: None (occurrence: None)
  Receive Date: 20090313
  Receipt Date: 20090227
  Transmission Date: 20090719
  Serious: Yes (Life-Threatening, Hospitalization, Other)
  Sender: FDA-Public Use
  Company Number: 2009S1003679

PATIENT
  Age: 54 Year
  Sex: Male
  Weight: 78 kg

DRUGS (12)
  1. RAMIPRIL [Suspect]
     Indication: HYPERTENSION
     Dosage: 5 MG; QD; ORAL
     Route: 048
  2. FALITHROM (PHENPROCOUMON) (3 MG) [Suspect]
     Indication: PULMONARY EMBOLISM
     Dosage: 3 MG; ORAL
     Route: 048
  3. FURORESE (FUROSEMIDE) (40 MG) [Suspect]
     Indication: RENAL IMPAIRMENT
     Dosage: 40 MG; DAILY; ORAL
     Route: 048
     Dates: end: 20080821
  4. HYDROCHLOROTHIAZIDE [Suspect]
     Indication: HYPERTENSION
     Dosage: 25 MG; DAILY; ORAL
     Route: 048
     Dates: end: 20080821
  5. BISOPROLOL FUMARATE [Suspect]
     Indication: CORONARY ARTERY DISEASE
     Dosage: 5 MG; TWICE A DAY; ORAL
     Route: 048
  6. BEROTEC [Concomitant]
  7. NEURONTIN [Concomitant]
  8. PANTOZOL [Concomitant]
  9. PREGABALIN [Concomitant]
  10. SIFROL [Concomitant]
  11. SIMVASTATIN [Concomitant]
  12. SPIRIVA [Concomitant]

REACTIONS (3)
  - DEHYDRATION [None]
  - DRUG INTERACTION [None]
  - INTERNATIONAL NORMALISED RATIO INCREASED [None]
